FAERS Safety Report 19429539 (Version 1)
Quarter: 2021Q2

REPORT INFORMATION
  Report Type: Spontaneous
  Country: US (occurrence: US)
  Receive Date: 20210617
  Receipt Date: 20210617
  Transmission Date: 20210717
  Serious: Yes (Hospitalization, Other)
  Sender: FDA-Public Use
  Company Number: US-ABBVIE-21K-163-3950399-00

PATIENT
  Sex: Male

DRUGS (1)
  1. IMBRUVICA [Suspect]
     Active Substance: IBRUTINIB
     Indication: NON-HODGKIN^S LYMPHOMA
     Route: 048
     Dates: start: 2019, end: 20210301

REACTIONS (11)
  - Dysgeusia [Not Recovered/Not Resolved]
  - Blood pressure increased [Unknown]
  - Urinary tract infection [Unknown]
  - Weight decreased [Not Recovered/Not Resolved]
  - Seizure [Not Recovered/Not Resolved]
  - Anaemia [Unknown]
  - Blood pressure decreased [Unknown]
  - Decreased appetite [Not Recovered/Not Resolved]
  - Blood sodium decreased [Recovering/Resolving]
  - Clostridium difficile infection [Unknown]
  - Myalgia [Unknown]

NARRATIVE: CASE EVENT DATE: 202012
